FAERS Safety Report 15585080 (Version 2)
Quarter: 2018Q4

REPORT INFORMATION
  Report Type: Report from Study
  Country: US (occurrence: US)
  Receive Date: 20181105
  Receipt Date: 20181110
  Transmission Date: 20190205
  Serious: Yes (Death, Hospitalization, Other)
  Sender: FDA-Public Use
  Company Number: PHEH2018US046636

PATIENT
  Age: 75 Year
  Sex: Male

DRUGS (8)
  1. ENTRESTO [Suspect]
     Active Substance: SACUBITRIL\VALSARTAN
     Indication: ISCHAEMIC CARDIOMYOPATHY
     Dosage: 1 DF(24 MG SACUBITRIL, 26 MG VALSARTAN), UNK
     Route: 048
  2. PLAVIX [Suspect]
     Active Substance: CLOPIDOGREL BISULFATE
     Indication: CORONARY ARTERY DISEASE
     Dosage: 75 UNK, QD
     Route: 048
  3. LIPITOR [Suspect]
     Active Substance: ATORVASTATIN CALCIUM
     Indication: BLOOD CHOLESTEROL ABNORMAL
     Dosage: 80 MG, UNK
     Route: 048
  4. LASIX [Suspect]
     Active Substance: FUROSEMIDE
     Indication: ISCHAEMIC CARDIOMYOPATHY
     Route: 048
  5. KAYEXALATE [Concomitant]
     Active Substance: SODIUM POLYSTYRENE SULFONATE
     Indication: PRODUCT USED FOR UNKNOWN INDICATION
     Route: 065
  6. ASA [Suspect]
     Active Substance: ASPIRIN
     Indication: CORONARY ARTERY DISEASE
     Dosage: 81 UNK, UNK
     Route: 048
  7. INSULIN [Concomitant]
     Active Substance: INSULIN NOS
     Indication: PRODUCT USED FOR UNKNOWN INDICATION
     Route: 065
  8. COREG [Suspect]
     Active Substance: CARVEDILOL
     Indication: ISCHAEMIC CARDIOMYOPATHY
     Dosage: 6.25 UNK, BID
     Route: 048

REACTIONS (28)
  - Hypotension [Unknown]
  - Urine output decreased [Unknown]
  - Platelet count decreased [Unknown]
  - Ischaemic hepatitis [Unknown]
  - Shock [Unknown]
  - Azotaemia [Unknown]
  - Blood sodium decreased [Unknown]
  - Ischaemic cardiomyopathy [Fatal]
  - White blood cell count increased [Unknown]
  - Haemoglobin decreased [Unknown]
  - Blood glucose increased [Unknown]
  - Acute kidney injury [Unknown]
  - Metabolic encephalopathy [Unknown]
  - Asthenia [Unknown]
  - Hyperkalaemia [Unknown]
  - Left ventricular failure [Unknown]
  - Carbon dioxide decreased [Unknown]
  - Cardiogenic shock [Fatal]
  - Carotid artery stenosis [Unknown]
  - Hypovolaemia [Unknown]
  - Product use in unapproved indication [Unknown]
  - Rhabdomyolysis [Unknown]
  - Haematocrit decreased [Unknown]
  - Blood chloride decreased [Unknown]
  - Hypocalcaemia [Unknown]
  - Ejection fraction decreased [Unknown]
  - Coagulopathy [Unknown]
  - Mental disorder [Unknown]

NARRATIVE: CASE EVENT DATE: 20171223
